FAERS Safety Report 24152752 (Version 1)
Quarter: 2024Q3

REPORT INFORMATION
  Report Type: Spontaneous
  Country: DE (occurrence: DE)
  Receive Date: 20240730
  Receipt Date: 20240730
  Transmission Date: 20241017
  Serious: Yes (Other)
  Sender: NOVARTIS
  Company Number: None

PATIENT
  Age: 54 Year
  Sex: Male
  Weight: 91 kg

DRUGS (3)
  1. INCLISIRAN [Suspect]
     Active Substance: INCLISIRAN
     Indication: Coronary artery bypass
     Dosage: UNK
     Route: 065
     Dates: start: 202108, end: 202301
  2. INCLISIRAN [Suspect]
     Active Substance: INCLISIRAN
     Indication: Coronary artery disease
  3. INCLISIRAN [Suspect]
     Active Substance: INCLISIRAN
     Indication: Hypercholesterolaemia

REACTIONS (4)
  - Blood creatine phosphokinase increased [Recovered/Resolved]
  - Myalgia [Recovered/Resolved]
  - Myopathy [Recovered/Resolved]
  - Mobility decreased [Recovered/Resolved]

NARRATIVE: CASE EVENT DATE: 20220101
